FAERS Safety Report 9880019 (Version 3)
Quarter: 2014Q1

REPORT INFORMATION
  Report Type: Spontaneous
  Country: DE (occurrence: DE)
  Receive Date: 20140207
  Receipt Date: 20140312
  Transmission Date: 20141002
  Serious: Yes (Hospitalization, Other)
  Sender: FDA-Public Use
  Company Number: DE-BIOGENIDEC-2014BI010469

PATIENT
  Age: 0 Year
  Sex: Male

DRUGS (1)
  1. TYSABRI [Suspect]
     Indication: MATERNAL EXPOSURE TIMING UNSPECIFIED
     Route: 064
     Dates: start: 200904, end: 20121121

REACTIONS (1)
  - Swelling [Recovered/Resolved]
